FAERS Safety Report 20074435 (Version 2)
Quarter: 2022Q4

REPORT INFORMATION
  Report Type: Report from Study
  Country: US (occurrence: US)
  Receive Date: 20211116
  Receipt Date: 20221022
  Transmission Date: 20230112
  Serious: Yes (Other)
  Sender: FDA-Public Use
  Company Number: US-SHIRE-US201800136

PATIENT
  Sex: Female

DRUGS (1)
  1. HUMAN IMMUNOGLOBULIN G [Suspect]
     Active Substance: HUMAN IMMUNOGLOBULIN G
     Indication: Immunodeficiency common variable
     Dosage: UNK
     Route: 042

REACTIONS (6)
  - Pneumonia [Unknown]
  - Bronchitis [Unknown]
  - COVID-19 [Recovered/Resolved]
  - Skin burning sensation [Unknown]
  - Sinusitis [Unknown]
  - Nervous system disorder [Recovering/Resolving]
